FAERS Safety Report 5778502-5 (Version None)
Quarter: 2008Q2

REPORT INFORMATION
  Report Type: 
  Country: None (occurrence: None)
  Receive Date: 20080618
  Receipt Date: 20080618
  Transmission Date: 20081010
  Serious: Yes (Hospitalization)
  Sender: FDA-Public Use
  Company Number: None

PATIENT
  Age: 56 Year
  Sex: Male

DRUGS (3)
  1. SIMVASTATIN [Suspect]
     Dosage: 40 MG DAILY
     Route: 048
  2. ASPIRIN [Concomitant]
  3. CLOPIDOGREL [Concomitant]

REACTIONS (5)
  - BODY TEMPERATURE DECREASED [None]
  - COMPARTMENT SYNDROME [None]
  - ERYTHEMA NODOSUM [None]
  - INCORRECT DOSE ADMINISTERED [None]
  - OVERDOSE [None]
